FAERS Safety Report 9271679 (Version 1)
Quarter: 2013Q2

REPORT INFORMATION
  Report Type: Spontaneous
  Country: FR (occurrence: FR)
  Receive Date: 20130506
  Receipt Date: 20130506
  Transmission Date: 20140414
  Serious: Yes (Other)
  Sender: FDA-Public Use
  Company Number: FR-PFIZER INC-2013135252

PATIENT
  Age: 84 Year
  Sex: Male

DRUGS (9)
  1. TAZOCILLINE [Suspect]
     Dosage: 4 G, 3X/DAY
     Route: 041
     Dates: start: 20130221, end: 20130228
  2. ROVAMYCIN [Concomitant]
     Dosage: 1.5 KIU, 3X/DAY
     Route: 041
     Dates: start: 20130221
  3. MODOPAR [Concomitant]
  4. KARDEGIC [Concomitant]
  5. DAFALGAN [Concomitant]
  6. OMEXEL [Concomitant]
  7. AUGMENTIN [Concomitant]
     Dosage: UNK
     Dates: start: 201302, end: 201302
  8. CEFTRIAXONE [Concomitant]
     Dosage: UNK
     Dates: start: 201302, end: 201302
  9. METRONIDAZOLE [Concomitant]
     Dosage: UNK
     Dates: start: 201302, end: 201302

REACTIONS (1)
  - Hyperbilirubinaemia [Recovered/Resolved]
